FAERS Safety Report 15263310 (Version 1)
Quarter: 2018Q3

REPORT INFORMATION
  Report Type: Spontaneous
  Country: FR (occurrence: FR)
  Receive Date: 20180810
  Receipt Date: 20180810
  Transmission Date: 20181010
  Serious: Yes (Life-Threatening, Hospitalization)
  Sender: FDA-Public Use
  Company Number: FR-TEVA-2018-FR-937611

PATIENT
  Age: 60 Year
  Sex: Female

DRUGS (2)
  1. BISOPROLOL [Suspect]
     Active Substance: BISOPROLOL
     Indication: CARDIAC FAILURE
     Dosage: 10 MILLIGRAM DAILY;
     Route: 048
     Dates: end: 20170529
  2. BACLOFENE [Suspect]
     Active Substance: BACLOFEN
     Indication: TRIGEMINAL NEURALGIA
     Dosage: 30 MILLIGRAM DAILY;
     Route: 048
     Dates: start: 20170520, end: 20170529

REACTIONS (3)
  - Acute pulmonary oedema [Recovered/Resolved]
  - Pulmonary oedema [Recovered/Resolved]
  - Sinus bradycardia [Recovered/Resolved]

NARRATIVE: CASE EVENT DATE: 20170529
